FAERS Safety Report 4335140-9 (Version None)
Quarter: 2004Q2

REPORT INFORMATION
  Report Type: 
  Country: None (occurrence: None)
  Receive Date: 20040408
  Receipt Date: 20040406
  Transmission Date: 20050107
  Serious: Yes (Hospitalization)
  Sender: FDA-Public Use
  Company Number: US-BRISTOL-MYERS SQUIBB COMPANY-12551792

PATIENT
  Age: 67 Year
  Sex: Male

DRUGS (14)
  1. COUMADIN [Suspect]
     Indication: STENT PLACEMENT
     Route: 048
     Dates: start: 20031001, end: 20031123
  2. COUMADIN [Suspect]
     Indication: CORONARY ARTERY DISEASE
     Route: 048
     Dates: start: 20031001, end: 20031123
  3. PLAVIX [Suspect]
     Indication: STENT PLACEMENT
     Route: 048
     Dates: start: 20031001, end: 20040128
  4. PLAVIX [Suspect]
     Indication: CORONARY ARTERY DISEASE
     Route: 048
     Dates: start: 20031001, end: 20040128
  5. NORVIR [Concomitant]
     Indication: HIV TEST
     Route: 048
  6. ANDRODERM [Concomitant]
     Indication: HORMONE REPLACEMENT THERAPY
     Route: 061
  7. AVAPRO [Concomitant]
     Indication: HYPERTENSION
     Route: 048
  8. COREG [Concomitant]
     Indication: HYPERTENSION
     Route: 048
  9. CARDIZEM [Concomitant]
     Indication: ARRHYTHMIA
     Route: 048
  10. ASPIRIN [Concomitant]
     Indication: COAGULOPATHY
     Route: 048
     Dates: start: 20031001
  11. PRAVACHOL [Concomitant]
     Indication: HYPERLIPIDAEMIA
     Route: 048
  12. NELFINAVIR [Concomitant]
     Indication: HIV TEST
     Route: 048
  13. ACYCLOVIR [Concomitant]
     Indication: HIV TEST
     Route: 048
  14. RETROVIR [Concomitant]
     Indication: HIV TEST
     Route: 048

REACTIONS (3)
  - EPISTAXIS [None]
  - HAEMOGLOBIN DECREASED [None]
  - WHITE BLOOD CELL COUNT DECREASED [None]
